FAERS Safety Report 6132676-5 (Version None)
Quarter: 2009Q1

REPORT INFORMATION
  Report Type: 
  Country: None (occurrence: None)
  Receive Date: 20090324
  Receipt Date: 20080811
  Transmission Date: 20090719
  Serious: Yes (Hospitalization)
  Sender: FDA-Public Use
  Company Number: 2008AP002027

PATIENT
  Age: 35 Year
  Sex: Male

DRUGS (2)
  1. FLUOXETINE HYDROCHLORIDE [Suspect]
     Indication: DEPRESSION
     Dosage: 40 MG; 200 MG; 1X
  2. LAMOTRIGINE [Suspect]
     Indication: MOOD SWINGS
     Dosage: 200 MG; QD; 400 MG; QD; 2800 MG;1X

REACTIONS (8)
  - BIPOLAR DISORDER [None]
  - CONFUSIONAL STATE [None]
  - DELIRIUM [None]
  - DRUG INTERACTION [None]
  - HALLUCINATIONS, MIXED [None]
  - INTENTIONAL OVERDOSE [None]
  - MOOD ALTERED [None]
  - THERAPEUTIC AGENT TOXICITY [None]
